FAERS Safety Report 23355876 (Version 2)
Quarter: 2024Q1

REPORT INFORMATION
  Report Type: Spontaneous
  Country: US (occurrence: US)
  Receive Date: 20240102
  Receipt Date: 20240202
  Transmission Date: 20240410
  Serious: No
  Sender: FDA-Public Use
  Company Number: US-SA-SAC20231227000836

PATIENT
  Age: 18 Year
  Sex: Female
  Weight: 51 kg

DRUGS (2)
  1. DUPIXENT [Suspect]
     Active Substance: DUPILUMAB
     Indication: Eosinophilic oesophagitis
     Dosage: 300 MG
     Route: 058
     Dates: start: 202307
  2. DUPIXENT [Suspect]
     Active Substance: DUPILUMAB
     Indication: Dysphagia
     Dosage: 300 MG, QW
     Route: 058
     Dates: start: 202308, end: 2023

REACTIONS (3)
  - Dysphagia [Unknown]
  - Product dose omission issue [Unknown]
  - Product use in unapproved indication [Unknown]

NARRATIVE: CASE EVENT DATE: 20230101
